FAERS Safety Report 8062303-1 (Version None)
Quarter: 2012Q1

REPORT INFORMATION
  Report Type: 
  Country: None (occurrence: None)
  Receive Date: 20120123
  Receipt Date: 20120117
  Transmission Date: 20120608
  Serious: No
  Sender: FDA-Public Use
  Company Number: US-PFIZER INC-2012013098

PATIENT
  Sex: Female

DRUGS (2)
  1. DEPO-SUBQ PROVERA 104 [Suspect]
     Dosage: UNK
  2. NEURONTIN [Concomitant]
     Dosage: UNK

REACTIONS (2)
  - MUSCLE SPASMS [None]
  - MOOD SWINGS [None]
